FAERS Safety Report 19651544 (Version 2)
Quarter: 2021Q3

REPORT INFORMATION
  Report Type: Spontaneous
  Country: US (occurrence: US)
  Receive Date: 20210803
  Receipt Date: 20210906
  Transmission Date: 20211014
  Serious: No
  Sender: FDA-Public Use
  Company Number: US-ASTRAZENECA-2021A617135

PATIENT
  Sex: Female
  Weight: 880.9 kg

DRUGS (5)
  1. BYDUREON [Suspect]
     Active Substance: EXENATIDE
     Indication: TYPE 2 DIABETES MELLITUS
     Route: 058
  2. ASPIRIN. [Concomitant]
     Active Substance: ASPIRIN
     Indication: CARDIAC MURMUR
  3. BYDUREON BCISE [Concomitant]
     Active Substance: EXENATIDE
     Indication: TYPE 2 DIABETES MELLITUS
     Route: 058
  4. ATENOLOL. [Concomitant]
     Active Substance: ATENOLOL
     Indication: BLOOD CHOLESTEROL INCREASED
  5. FENOFIBRATE. [Concomitant]
     Active Substance: FENOFIBRATE
     Indication: BLOOD CHOLESTEROL INCREASED
     Dosage: 145.0MG UNKNOWN

REACTIONS (11)
  - Oesophageal spasm [Not Recovered/Not Resolved]
  - Injection site erythema [Recovering/Resolving]
  - Adverse drug reaction [Unknown]
  - Wrong technique in device usage process [Unknown]
  - Arthritis [Unknown]
  - Injection site pain [Recovered/Resolved]
  - Arthralgia [Unknown]
  - Myalgia [Unknown]
  - Device malfunction [Unknown]
  - Device use error [Unknown]
  - Choking [Not Recovered/Not Resolved]
